FAERS Safety Report 7730993-6 (Version None)
Quarter: 2011Q3

REPORT INFORMATION
  Report Type: 
  Country: None (occurrence: None)
  Receive Date: 20110906
  Receipt Date: 20110826
  Transmission Date: 20111222
  Serious: Yes (Hospitalization)
  Sender: FDA-Public Use
  Company Number: JP-SANOFI-AVENTIS-2011SA035707

PATIENT
  Age: 64 Year
  Sex: Male
  Weight: 47 kg

DRUGS (6)
  1. FLUOROURACIL [Suspect]
     Route: 041
     Dates: start: 20110520, end: 20110520
  2. ALOXI [Concomitant]
     Indication: PREMEDICATION
     Route: 041
     Dates: start: 20110520, end: 20110520
  3. OXALIPLATIN [Suspect]
     Indication: RECTAL CANCER
     Dosage: 120.7 MG/BODY
     Route: 041
     Dates: start: 20110520, end: 20110520
  4. LEUCOVORIN CALCIUM [Concomitant]
     Route: 042
     Dates: start: 20110520, end: 20110520
  5. DEXAMETHASONE SODIUM PHOSPHATE [Concomitant]
     Indication: PREMEDICATION
     Route: 041
     Dates: start: 20110520, end: 20110520
  6. FLUOROURACIL [Suspect]
     Indication: RECTAL CANCER
     Route: 040
     Dates: start: 20110520, end: 20110520

REACTIONS (3)
  - HYPERAMMONAEMIA [None]
  - LACTIC ACIDOSIS [None]
  - VOMITING [None]
